FAERS Safety Report 8777066 (Version 1)
Quarter: 2012Q4

REPORT INFORMATION
  Report Type: 
  Country: CR (occurrence: CR)
  Receive Date: 20120911
  Receipt Date: 20120911
  Transmission Date: 20130627
  Serious: Yes (Other)
  Sender: FDA-Public Use
  Company Number: PHHY2012CR078608

PATIENT
  Age: 57 Year
  Sex: Female

DRUGS (8)
  1. ACLASTA [Suspect]
     Indication: OSTEOPOROSIS
     Dosage: 5 mg,
     Route: 042
     Dates: start: 2010
  2. ACLASTA [Suspect]
     Dosage: 5 mg, UNK
     Route: 042
     Dates: start: 20120430
  3. EUTIROX [Concomitant]
     Dosage: 25 mcg/day
     Route: 048
  4. VITAMIN D [Concomitant]
     Dosage: 1000 U/day
     Route: 048
  5. GLUCOSAMINE [Concomitant]
     Dosage: 1.5 g/day
     Route: 048
  6. ENALAPRIL [Concomitant]
  7. PENTASA [Concomitant]
  8. DICETEL [Concomitant]

REACTIONS (1)
  - Thrombocytopenia [Unknown]
